FAERS Safety Report 8923962 (Version 1)
Quarter: 2012Q4

REPORT INFORMATION
  Report Type: 
  Country: CN (occurrence: CN)
  Receive Date: 20121126
  Receipt Date: 20121126
  Transmission Date: 20130627
  Serious: Yes (Other)
  Sender: FDA-Public Use
  Company Number: CN-BAYER-2012-119563

PATIENT
  Age: 72 Year
  Sex: Female

DRUGS (2)
  1. NIMOTOP [Suspect]
     Dosage: 1 DF, QD
     Route: 048
     Dates: start: 2008
  2. BAYASPIRIN [Concomitant]

REACTIONS (3)
  - Presbyacusis [None]
  - Tinnitus [None]
  - Deafness [None]
